APPROVED DRUG PRODUCT: THIORIDAZINE HYDROCHLORIDE
Active Ingredient: THIORIDAZINE HYDROCHLORIDE
Strength: 10MG
Dosage Form/Route: TABLET;ORAL
Application: A088270 | Product #001
Applicant: ANI PHARMACEUTICALS INC
Approved: Apr 14, 1983 | RLD: No | RS: No | Type: DISCN